FAERS Safety Report 23848736 (Version 1)
Quarter: 2024Q2

REPORT INFORMATION
  Report Type: Spontaneous
  Country: US (occurrence: US)
  Receive Date: 20240513
  Receipt Date: 20240513
  Transmission Date: 20240715
  Serious: No
  Sender: FDA-Public Use
  Company Number: US-PFIZER INC-PV202400061086

PATIENT
  Age: 67 Year
  Sex: Female
  Weight: 69.9 kg

DRUGS (3)
  1. INLYTA [Suspect]
     Active Substance: AXITINIB
     Dosage: TAKE 3MG (3 X 1MG TABLETS) BY MOUTH EVERY 12 HOURS
     Route: 048
  2. INLYTA [Suspect]
     Active Substance: AXITINIB
     Dosage: TAKE 2MG (2X1MG TAB) AND 5MG (1X5MG TAB) (7MG TOTAL) BY MOUTH EVERY 12 HOURS
     Route: 048
  3. INLYTA [Suspect]
     Active Substance: AXITINIB
     Dosage: TAKE 2 TABLETS (10 MG TOTAL) BY MOUTH EVERY 12 (TWELVE) HOURS
     Route: 048

REACTIONS (1)
  - White blood cell count increased [Unknown]

NARRATIVE: CASE EVENT DATE: 20240509
